FAERS Safety Report 15105648 (Version 2)
Quarter: 2019Q1

REPORT INFORMATION
  Report Type: Spontaneous
  Country: FR (occurrence: FR)
  Receive Date: 20180704
  Receipt Date: 20190322
  Transmission Date: 20190417
  Serious: Yes (Other)
  Sender: FDA-Public Use
  Company Number: FR-009507513-1806FRA011242

PATIENT
  Age: 37 Year
  Sex: Female
  Weight: 51 kg

DRUGS (9)
  1. PROPYLEX 50 [Concomitant]
     Indication: HYPERTHYROIDISM
     Dosage: 1 DF IN THE MORNING AND EVENING
     Route: 048
     Dates: start: 20180123
  2. CELESTENE 4MG/1ML [Suspect]
     Active Substance: BETAMETHASONE
     Indication: MATERNAL THERAPY TO ENHANCE FOETAL LUNG MATURITY
     Dosage: 12 MG BY IM ROUTE X 2
     Route: 030
     Dates: start: 20180612, end: 20180613
  3. CELESTENE 4MG/1ML [Suspect]
     Active Substance: BETAMETHASONE
     Indication: PRE-ECLAMPSIA
  4. UTROGESTAN [Concomitant]
     Active Substance: PROGESTERONE
     Indication: THREATENED LABOUR
     Dosage: 200 MG, PER DAY
     Route: 048
     Dates: start: 20180325, end: 20180401
  5. LOXEN [Concomitant]
     Indication: HYPERTENSION
     Dosage: 50 MILLIGRAM, BID
     Route: 048
     Dates: start: 20180522, end: 20180529
  6. LOXEN [Concomitant]
     Indication: GESTATIONAL HYPERTENSION
  7. LOXEN 50 LP [Concomitant]
     Indication: HYPERTENSION
     Dosage: 50 MG X 2
     Dates: start: 20180605
  8. LEVOTHYROX [Concomitant]
     Active Substance: LEVOTHYROXINE
     Indication: HYPERTHYROIDISM
     Dosage: 1 DF IN MORNING
     Route: 048
     Dates: start: 20180123, end: 20180303
  9. ALDOMET [Concomitant]
     Active Substance: METHYLDOPA
     Indication: HYPERTENSION
     Dosage: 250 MG IN THE MORNING AT NOON AND IN THE EVENING
     Route: 048
     Dates: start: 20180605

REACTIONS (3)
  - Caesarean section [Unknown]
  - Premature delivery [Unknown]
  - Exposure during pregnancy [Recovered/Resolved]

NARRATIVE: CASE EVENT DATE: 20180616
